FAERS Safety Report 6753510-6 (Version None)
Quarter: 2010Q2

REPORT INFORMATION
  Report Type: 
  Country: None (occurrence: None)
  Receive Date: 20100520
  Receipt Date: 20090916
  Transmission Date: 20101027
  Serious: Yes (Other)
  Sender: FDA-Public Use
  Company Number: 2009270149

PATIENT
  Age: 59 Year
  Sex: Female

DRUGS (11)
  1. PROVERA [Suspect]
     Indication: HORMONE REPLACEMENT THERAPY
     Dosage: ORAL
     Route: 048
     Dates: start: 19880101
  2. PREMARIN [Suspect]
     Indication: HORMONE REPLACEMENT THERAPY
     Dates: start: 19880101
  3. PREMPRO [Suspect]
     Indication: HORMONE REPLACEMENT THERAPY
     Dates: start: 19960101, end: 20020401
  4. ASPIRIN [Concomitant]
  5. SPIROLACTONE (SPIRONOLACTONE) [Concomitant]
  6. CHLORTHALIDONE [Concomitant]
  7. METFORMIN HCL [Concomitant]
  8. AMARYL [Concomitant]
  9. AVANDIA [Concomitant]
  10. LIPITOR [Concomitant]
  11. ZETIA [Concomitant]

REACTIONS (1)
  - BREAST CANCER FEMALE [None]
